FAERS Safety Report 6678663-X (Version None)
Quarter: 2010Q2

REPORT INFORMATION
  Report Type: 
  Country: None (occurrence: None)
  Receive Date: 20100413
  Receipt Date: 20100401
  Transmission Date: 20101027
  Serious: Yes (Death)
  Sender: FDA-Public Use
  Company Number: TW-PFIZER INC-2009315022

PATIENT
  Age: 59 Year
  Sex: Male
  Weight: 73 kg

DRUGS (9)
  1. SUNITINIB MALATE [Suspect]
     Indication: HEPATIC NEOPLASM MALIGNANT NON-RESECTABLE
     Dosage: 37.5 MG, 1X/DAY
     Route: 048
     Dates: start: 20090728, end: 20091223
  2. ACEMETACIN [Concomitant]
     Indication: OROPHARYNGEAL PAIN
     Dosage: 90 MG, 2X/DAY
     Dates: start: 20091208, end: 20091224
  3. ASPIRIN [Concomitant]
     Indication: RADIOTHERAPY
     Dosage: 100 MG, 1X/DAY
     Dates: start: 20040101, end: 20091224
  4. IRBESARTAN [Concomitant]
     Indication: RADIOTHERAPY
     Dosage: 150 MG, 1X/DAY
     Dates: start: 20040101, end: 20091224
  5. PIRACETAM [Concomitant]
     Indication: RADIOTHERAPY
     Dosage: 1000 MG, 1X/DAY
     Dates: start: 20040101
  6. PROPRANOLOL HYDROCHLORIDE [Concomitant]
     Indication: RADIOTHERAPY
     Dosage: 10 MG, 2X/DAY
     Dates: start: 20040101, end: 20091224
  7. FELODIPINE [Concomitant]
     Indication: HYPERTENSION
     Dosage: 5 MG, 2X/DAY
     Dates: start: 20091203, end: 20091224
  8. DIPYRIDAMOLE [Concomitant]
     Indication: RADIOTHERAPY
     Dosage: 75 MG, 1X/DAY
     Dates: start: 20040101, end: 20091224
  9. CINNARIZINE [Concomitant]
     Indication: DIZZINESS
     Dosage: UNK
     Dates: start: 20091208, end: 20091224

REACTIONS (1)
  - HAEMATEMESIS [None]
